FAERS Safety Report 17860520 (Version 1)
Quarter: 2020Q2

REPORT INFORMATION
  Report Type: Spontaneous
  Country: US (occurrence: US)
  Receive Date: 20200604
  Receipt Date: 20200604
  Transmission Date: 20200714
  Serious: No
  Sender: FDA-Public Use
  Company Number: US-SA-2020SA138638

PATIENT

DRUGS (1)
  1. DUPIXENT [Suspect]
     Active Substance: DUPILUMAB
     Indication: SINUS POLYP
     Dosage: 300 MG, QOW
     Route: 058

REACTIONS (6)
  - Pyrexia [Unknown]
  - Peripheral swelling [Unknown]
  - Injection site erythema [Unknown]
  - Malaise [Unknown]
  - Condition aggravated [Unknown]
  - Injection site pruritus [Unknown]
